FAERS Safety Report 22233780 (Version 19)
Quarter: 2025Q1

REPORT INFORMATION
  Report Type: Spontaneous
  Country: US (occurrence: US)
  Receive Date: 20230420
  Receipt Date: 20250321
  Transmission Date: 20250408
  Serious: Yes (Hospitalization)
  Sender: VERTEX
  Company Number: US-VERTEX PHARMACEUTICALS-2023-004779

PATIENT
  Sex: Female

DRUGS (3)
  1. TRIKAFTA [Suspect]
     Active Substance: ELEXACAFTOR\IVACAFTOR\TEZACAFTOR
     Indication: Cystic fibrosis
     Route: 048
     Dates: start: 202302
  2. TRIKAFTA [Suspect]
     Active Substance: ELEXACAFTOR\IVACAFTOR\TEZACAFTOR
     Route: 048
  3. TRIKAFTA [Suspect]
     Active Substance: ELEXACAFTOR\IVACAFTOR\TEZACAFTOR
     Route: 048

REACTIONS (17)
  - Hypoglycaemia [Unknown]
  - Rash [Recovered/Resolved]
  - Hypomenorrhoea [Not Recovered/Not Resolved]
  - Insomnia [Recovered/Resolved]
  - Lung disorder [Not Recovered/Not Resolved]
  - Pancreatic failure [Not Recovered/Not Resolved]
  - Productive cough [Recovered/Resolved]
  - Constipation [Recovered/Resolved]
  - Migraine [Not Recovered/Not Resolved]
  - Frustration tolerance decreased [Unknown]
  - Muscle atrophy [Not Recovered/Not Resolved]
  - Fear [Unknown]
  - Cystic fibrosis related diabetes [Not Recovered/Not Resolved]
  - Kidney infection [Unknown]
  - Weight decreased [Unknown]
  - Breast enlargement [Unknown]
  - Urinary tract infection [Unknown]

NARRATIVE: CASE EVENT DATE: 20230101
